FAERS Safety Report 8582892-8 (Version None)
Quarter: 2012Q3

REPORT INFORMATION
  Report Type: 
  Country: None (occurrence: None)
  Receive Date: 20120727
  Receipt Date: 20120718
  Transmission Date: 20120928
  Serious: Yes (Other)
  Sender: FDA-Public Use
  Company Number: AUR-APL-2012-03193

PATIENT
  Age: 65 Year
  Sex: Female

DRUGS (3)
  1. ALBUTEROL SULATE [Concomitant]
  2. TIOTROPIUM (TIOTROPIUM) [Concomitant]
  3. RISPERIDONE [Suspect]
     Indication: DEPRESSION
     Dosage: 2 MG (1 MG, 2 IN 1 D)

REACTIONS (1)
  - CYSTOID MACULAR OEDEMA [None]
